FAERS Safety Report 9854675 (Version 2)
Quarter: 2014Q1

REPORT INFORMATION
  Report Type: Report from Study
  Country: DE (occurrence: DE)
  Receive Date: 20140130
  Receipt Date: 20140130
  Transmission Date: 20141002
  Serious: Yes (Death)
  Sender: FDA-Public Use
  Company Number: DE-ROCHE-1283141

PATIENT
  Age: 85 Year
  Sex: Female
  Weight: 70 kg

DRUGS (7)
  1. METHOXY POLYETHYLENE GLYCOL-EPOETIN BETA [Suspect]
     Indication: NEPHROGENIC ANAEMIA
     Route: 065
     Dates: start: 20090728
  2. AMLODIPIN [Concomitant]
     Route: 065
     Dates: start: 2007
  3. METOHEXAL SUCC [Concomitant]
     Dosage: 95/12.5 MG
     Route: 065
     Dates: start: 2007
  4. EUTHYROX [Concomitant]
     Route: 065
     Dates: start: 20071219
  5. RENAGEL [Concomitant]
     Route: 065
     Dates: start: 20090220
  6. SIMVASTATIN [Concomitant]
     Route: 065
     Dates: start: 20091204
  7. SALBUTAMOL [Concomitant]
     Route: 065
     Dates: start: 20110530

REACTIONS (2)
  - Cardiac arrest [Fatal]
  - Atrial fibrillation [Fatal]
